FAERS Safety Report 20228274 (Version 4)
Quarter: 2022Q1

REPORT INFORMATION
  Report Type: Report from Study
  Country: JP (occurrence: JP)
  Receive Date: 20211224
  Receipt Date: 20220121
  Transmission Date: 20220423
  Serious: Yes (Hospitalization)
  Sender: FDA-Public Use
  Company Number: JP-ONO-2021JP032485

PATIENT
  Age: 51 Year
  Sex: Male
  Weight: 75 kg

DRUGS (7)
  1. NIVOLUMAB [Suspect]
     Active Substance: NIVOLUMAB
     Indication: Colon cancer
     Dosage: 480 MILLIGRAM, Q4WK
     Route: 041
     Dates: start: 20211014, end: 20211208
  2. BMS-986310 [Suspect]
     Active Substance: BMS-986310
     Indication: Colon cancer
     Dosage: 40 MILLIGRAM, QD
     Route: 048
     Dates: start: 20211014, end: 20211208
  3. CALONAL [Concomitant]
     Active Substance: ACETAMINOPHEN
     Indication: Pain prophylaxis
     Dosage: 400 MG, AS NECESSARY
     Route: 048
     Dates: start: 20211021, end: 20211209
  4. URSODIOL [Concomitant]
     Active Substance: URSODIOL
     Indication: Aspartate aminotransferase increased
     Dosage: 100 MG, Q8H
     Route: 048
     Dates: start: 20211209, end: 20211216
  5. URSODIOL [Concomitant]
     Active Substance: URSODIOL
     Indication: Alanine aminotransferase increased
     Dosage: 2400 MILLIGRAM
     Route: 048
  6. HEPARINOID [Concomitant]
     Indication: Dry skin
     Dosage: UNK
     Route: 061
     Dates: start: 20211021
  7. BETAMETHASONE DIPROPIONATE [Concomitant]
     Active Substance: BETAMETHASONE DIPROPIONATE
     Indication: Dry skin
     Dosage: UNK
     Route: 061
     Dates: start: 20211021

REACTIONS (1)
  - Hepatic function abnormal [Recovering/Resolving]

NARRATIVE: CASE EVENT DATE: 20211216
